FAERS Safety Report 9682784 (Version 3)
Quarter: 2014Q4

REPORT INFORMATION
  Report Type: Spontaneous
  Country: US (occurrence: US)
  Receive Date: 20131112
  Receipt Date: 20141021
  Transmission Date: 20150529
  Serious: Yes (Other)
  Sender: FDA-Public Use
  Company Number: PHEH2013US023010

PATIENT
  Age: 38 Year
  Sex: Male

DRUGS (7)
  1. HYDROCHLOROTHIAZIDE. [Concomitant]
     Active Substance: HYDROCHLOROTHIAZIDE
     Dosage: 25 MG, QD
     Route: 048
  2. HYDRALAZINE HCL [Concomitant]
     Active Substance: HYDRALAZINE HYDROCHLORIDE
     Dosage: 50 MG, BID
     Route: 048
  3. VALTURNA [Suspect]
     Active Substance: ALISKIREN HEMIFUMARATE\VALSARTAN
     Dosage: 150-160 MG, QD
     Route: 048
     Dates: start: 20100831, end: 201207
  4. CARTIA XT [Concomitant]
     Active Substance: DILTIAZEM HYDROCHLORIDE
     Dosage: 240 MG, QD
     Route: 048
  5. PLAVIX [Concomitant]
     Active Substance: CLOPIDOGREL BISULFATE
     Dosage: 75 MG, QD
     Route: 048
  6. LIPITOR [Concomitant]
     Active Substance: ATORVASTATIN CALCIUM
     Dosage: 40 MG, QD
     Route: 048
  7. JANUVIA [Concomitant]
     Active Substance: SITAGLIPTIN PHOSPHATE
     Dosage: 100 MG, QD
     Route: 048

REACTIONS (17)
  - Diabetes mellitus [Unknown]
  - Anhedonia [Unknown]
  - Cerebrovascular accident [Unknown]
  - Obesity [Unknown]
  - Blood potassium increased [Unknown]
  - Oedema peripheral [Unknown]
  - Chronic kidney disease [Unknown]
  - Hyperlipidaemia [Unknown]
  - Diabetic retinopathy [Unknown]
  - Renal impairment [Unknown]
  - Injury [Unknown]
  - Pain [Unknown]
  - Hypertension [Unknown]
  - Diabetic nephropathy [Unknown]
  - Erectile dysfunction [Unknown]
  - Blood creatine phosphokinase increased [Unknown]
  - Hypotension [Unknown]

NARRATIVE: CASE EVENT DATE: 20101207
